FAERS Safety Report 11003784 (Version 6)
Quarter: 2019Q2

REPORT INFORMATION
  Report Type: Spontaneous
  Country: FR (occurrence: FR)
  Receive Date: 20150409
  Receipt Date: 20190423
  Transmission Date: 20190711
  Serious: Yes (Other)
  Sender: FDA-Public Use
  Company Number: FR-TEVA-546543ISR

PATIENT
  Age: 33 Year
  Sex: Female
  Weight: 48 kg

DRUGS (1)
  1. COPAXONE [Suspect]
     Active Substance: GLATIRAMER ACETATE
     Dosage: C-SYNC AT A DEPTH OF 8 MM EXCEPT IN ARMS AT 7 MM.
     Route: 058
     Dates: start: 20150303, end: 2017

REACTIONS (34)
  - Fatigue [Not Recovered/Not Resolved]
  - Dyspnoea [Recovered/Resolved]
  - Blood pressure decreased [Unknown]
  - Feeling hot [Recovering/Resolving]
  - Injection site discolouration [Recovered/Resolved]
  - Hot flush [Not Recovered/Not Resolved]
  - Hyperhidrosis [Not Recovered/Not Resolved]
  - Nausea [Not Recovered/Not Resolved]
  - Pallor [Unknown]
  - Feeling cold [Unknown]
  - Paraesthesia [Recovered/Resolved]
  - Injection site pruritus [Not Recovered/Not Resolved]
  - Weight increased [Not Recovered/Not Resolved]
  - Injection site pain [Recovering/Resolving]
  - Muscular weakness [Recovered/Resolved]
  - Fluid retention [Unknown]
  - Sensory disturbance [Unknown]
  - Hypothermia [Not Recovered/Not Resolved]
  - Limb discomfort [Recovered/Resolved]
  - Injection site hypoaesthesia [Recovered/Resolved]
  - Chest discomfort [Unknown]
  - Asthenia [Not Recovered/Not Resolved]
  - Dizziness [Unknown]
  - Injection site vesicles [Recovering/Resolving]
  - Hypoglycaemia [Not Recovered/Not Resolved]
  - Chills [Unknown]
  - Swelling [Not Recovered/Not Resolved]
  - Injection site pain [Recovered/Resolved]
  - Injection site warmth [Not Recovered/Not Resolved]
  - Tachycardia [Not Recovered/Not Resolved]
  - Injection site swelling [Not Recovered/Not Resolved]
  - Decreased appetite [Not Recovered/Not Resolved]
  - Chest pain [Unknown]
  - Malaise [Not Recovered/Not Resolved]

NARRATIVE: CASE EVENT DATE: 2015
